FAERS Safety Report 11993662 (Version 3)
Quarter: 2016Q3

REPORT INFORMATION
  Report Type: Report from Study
  Country: JP (occurrence: JP)
  Receive Date: 20160203
  Receipt Date: 20160829
  Transmission Date: 20161109
  Serious: Yes (Hospitalization)
  Sender: FDA-Public Use
  Company Number: JP-EISAI MEDICAL RESEARCH-EC-2016-014023

PATIENT
  Age: 78 Year
  Sex: Female
  Weight: 46 kg

DRUGS (9)
  1. LENVIMA [Suspect]
     Active Substance: LENVATINIB
     Route: 048
     Dates: start: 20150627, end: 20150629
  2. PYDOXAL [Concomitant]
     Active Substance: PYRIDOXAL
  3. NORVASC [Concomitant]
     Active Substance: AMLODIPINE BESYLATE
  4. MYSER [Concomitant]
     Active Substance: DIFLUPREDNATE
  5. LENVIMA [Suspect]
     Active Substance: LENVATINIB
     Indication: PAPILLARY THYROID CANCER
     Route: 048
     Dates: start: 20150624, end: 20150625
  6. LENVIMA [Suspect]
     Active Substance: LENVATINIB
     Route: 048
     Dates: start: 20150630, end: 20150709
  7. LEVOTHYROXINE SODIUM HYDRATE [Concomitant]
     Active Substance: LEVOTHYROXINE SODIUM
  8. HIRUDOID [Concomitant]
     Active Substance: GLYCOSAMINOGLYCANS
  9. KERATINAMIN [Concomitant]
     Active Substance: UREA

REACTIONS (1)
  - Rash maculo-papular [Recovered/Resolved]

NARRATIVE: CASE EVENT DATE: 20150709
